FAERS Safety Report 20703850 (Version 6)
Quarter: 2022Q4

REPORT INFORMATION
  Report Type: Other
  Country: CA (occurrence: None)
  Receive Date: 20220413
  Receipt Date: 20221006
  Transmission Date: 20230112
  Serious: Yes (Hospitalization)
  Sender: FDA-Public Use
  Company Number: CA-ROCHE-2564807

PATIENT
  Age: 22 Year
  Sex: Male

DRUGS (11)
  1. OCREVUS [Suspect]
     Active Substance: OCRELIZUMAB
     Indication: Relapsing-remitting multiple sclerosis
     Dosage: ON DAY 0 AND DAY 14, THEN 600 MG EVERY 6 MONTHS, CONCENTRATE FOR INTRAVENOUS INFUSION
     Route: 042
     Dates: start: 20180906
  2. EMGALITY [Concomitant]
     Active Substance: GALCANEZUMAB-GNLM
  3. NAPROXEN [Concomitant]
     Active Substance: NAPROXEN
  4. FERROUS SULFATE [Concomitant]
     Active Substance: FERROUS SULFATE
  5. DULOXETINE [Concomitant]
     Active Substance: DULOXETINE
  6. HYDROXYCHLOROQUINE [Concomitant]
     Active Substance: HYDROXYCHLOROQUINE
  7. NORTRIPTYLINE [Concomitant]
     Active Substance: NORTRIPTYLINE
  8. VITAMIN C [Concomitant]
     Active Substance: ASCORBIC ACID
  9. TYLENOL [Concomitant]
     Active Substance: ACETAMINOPHEN
  10. MODERNA COVID-19 VACCINE [Concomitant]
     Active Substance: ELASOMERAN
  11. AMLODIPINE [Concomitant]
     Active Substance: AMLODIPINE BESYLATE

REACTIONS (12)
  - Pneumonia [Unknown]
  - Infusion related reaction [Not Recovered/Not Resolved]
  - Infusion related reaction [Recovered/Resolved]
  - Hypoaesthesia [Not Recovered/Not Resolved]
  - Feeling hot [Not Recovered/Not Resolved]
  - Feeling cold [Unknown]
  - Muscle spasms [Not Recovered/Not Resolved]
  - Muscle spasms [Not Recovered/Not Resolved]
  - Hypoaesthesia [Not Recovered/Not Resolved]
  - Paraesthesia [Unknown]
  - SARS-CoV-2 test positive [Recovered/Resolved]
  - Palpitations [Recovering/Resolving]

NARRATIVE: CASE EVENT DATE: 20200304
